FAERS Safety Report 7416304-4 (Version None)
Quarter: 2011Q2

REPORT INFORMATION
  Report Type: 
  Country: None (occurrence: None)
  Receive Date: 20110414
  Receipt Date: 20110404
  Transmission Date: 20111010
  Serious: Yes (Hospitalization, Other)
  Sender: FDA-Public Use
  Company Number: FR-ELI_LILLY_AND_COMPANY-FR201104001151

PATIENT
  Sex: Male

DRUGS (9)
  1. FLUDROCORTISONE [Concomitant]
     Dosage: 95 DF, QD
     Route: 048
  2. GUTRON [Concomitant]
     Dosage: 8 DF, QD
     Route: 048
  3. KARDEGIC [Concomitant]
     Indication: MYOCARDIAL INFARCTION
     Dosage: 75 MG, QD
     Route: 048
  4. CORDARONE [Concomitant]
     Indication: MYOCARDIAL INFARCTION
     Dosage: 1 DF, 5/W
  5. METHYLPREDNISOLONE [Concomitant]
     Indication: PREMEDICATION
     Dosage: 4 MG, UNK
     Dates: start: 20100707
  6. LODOZ [Concomitant]
     Indication: HYPERTENSION
     Dosage: 1 DF, QD
     Route: 048
  7. FOLIC ACID [Concomitant]
     Indication: PREMEDICATION
     Dosage: UNK, WEEKLY (1/W)
  8. VIT B12 [Concomitant]
     Indication: SUPPLEMENTATION THERAPY
     Dosage: 1000 MG, UNK
     Route: 030
  9. ALIMTA [Suspect]
     Dosage: UNK
     Route: 042
     Dates: start: 20100707, end: 20100818

REACTIONS (5)
  - OEDEMA [None]
  - PYREXIA [None]
  - GENERAL PHYSICAL HEALTH DETERIORATION [None]
  - PSYCHOMOTOR SKILLS IMPAIRED [None]
  - ANAEMIA [None]
